FAERS Safety Report 14638128 (Version 1)
Quarter: 2018Q1

REPORT INFORMATION
  Report Type: Spontaneous
  Country: US (occurrence: US)
  Receive Date: 20180314
  Receipt Date: 20180314
  Transmission Date: 20180509
  Serious: No
  Sender: FDA-Public Use
  Company Number: None

PATIENT
  Sex: Female

DRUGS (5)
  1. URSODIOL. [Concomitant]
     Active Substance: URSODIOL
  2. ASPIRIN. [Concomitant]
     Active Substance: ASPIRIN
  3. OCALIVA [Suspect]
     Active Substance: OBETICHOLIC ACID
     Indication: PRIMARY BILIARY CHOLANGITIS
     Route: 048
     Dates: start: 20161025
  4. VITAMIN D [Concomitant]
     Active Substance: CHOLECALCIFEROL
  5. B12 ACTIVE [Concomitant]

REACTIONS (2)
  - Drug dose omission [None]
  - Malaise [None]
